FAERS Safety Report 22301513 (Version 2)
Quarter: 2023Q2

REPORT INFORMATION
  Report Type: Spontaneous
  Country: US (occurrence: US)
  Receive Date: 20230510
  Receipt Date: 20230601
  Transmission Date: 20230722
  Serious: No
  Sender: FDA-Public Use
  Company Number: US-JNJFOC-20230463097

PATIENT
  Age: 67 Year
  Sex: Male
  Weight: 47.2 kg

DRUGS (14)
  1. STELARA [Suspect]
     Active Substance: USTEKINUMAB
     Indication: Crohn^s disease
     Route: 058
  2. STELARA [Suspect]
     Active Substance: USTEKINUMAB
     Route: 040
     Dates: start: 20221228
  3. ATORVASTATIN [Concomitant]
     Active Substance: ATORVASTATIN
  4. VITAMIN B12 [Concomitant]
     Active Substance: CYANOCOBALAMIN
     Route: 048
  5. LIDOCAINE [Concomitant]
     Active Substance: LIDOCAINE
  6. METOPROLOL [Concomitant]
     Active Substance: METOPROLOL
  7. PANTOPRAZOLE [Concomitant]
     Active Substance: PANTOPRAZOLE
     Indication: Dyspepsia
  8. ZOLOFT [Concomitant]
     Active Substance: SERTRALINE HYDROCHLORIDE
  9. TRAMADOL [Concomitant]
     Active Substance: TRAMADOL
  10. TYLENOL [Concomitant]
     Active Substance: ACETAMINOPHEN
     Indication: Pain
  11. ASPIRIN [Concomitant]
     Active Substance: ASPIRIN
  12. CALCIUM CHLORIDE\MAGNESIUM CHLORIDE [Concomitant]
     Active Substance: CALCIUM CHLORIDE\MAGNESIUM CHLORIDE
  13. METHOCARBAMOL [Concomitant]
     Active Substance: METHOCARBAMOL
  14. NITROGLYCERIN [Concomitant]
     Active Substance: NITROGLYCERIN
     Indication: Chest pain

REACTIONS (4)
  - Diarrhoea [Unknown]
  - Rash [Unknown]
  - Candida infection [Unknown]
  - Furuncle [Unknown]

NARRATIVE: CASE EVENT DATE: 20230201
